FAERS Safety Report 7402246-7 (Version None)
Quarter: 2011Q2

REPORT INFORMATION
  Report Type: 
  Country: None (occurrence: None)
  Receive Date: 20110408
  Receipt Date: 20110404
  Transmission Date: 20111010
  Serious: Yes (Other)
  Sender: FDA-Public Use
  Company Number: US-PFIZER INC-2011041845

PATIENT
  Sex: Male
  Weight: 83.9 kg

DRUGS (4)
  1. LISINOPRIL [Suspect]
     Indication: BLOOD PRESSURE ABNORMAL
     Dosage: 10 MG, 1X/DAY
     Dates: start: 20090901
  2. LIPITOR [Suspect]
     Indication: BLOOD CHOLESTEROL ABNORMAL
     Dosage: UNK
     Dates: start: 20060101, end: 20101001
  3. ALTACE [Suspect]
     Indication: BLOOD PRESSURE ABNORMAL
     Dosage: 10 MG, 1X/DAY
     Dates: start: 20100101
  4. SIMVASTATIN [Suspect]
     Indication: BLOOD CHOLESTEROL ABNORMAL
     Dosage: UNK
     Dates: start: 20081001, end: 20100101

REACTIONS (4)
  - HAEMATOCHEZIA [None]
  - MYALGIA [None]
  - THINKING ABNORMAL [None]
  - BLOOD URINE PRESENT [None]
